FAERS Safety Report 9874358 (Version 2)
Quarter: 2014Q1

REPORT INFORMATION
  Report Type: Spontaneous
  Country: PL (occurrence: PL)
  Receive Date: 20140206
  Receipt Date: 20140210
  Transmission Date: 20141002
  Serious: Yes (Other)
  Sender: FDA-Public Use
  Company Number: PL-ROCHE-1342159

PATIENT
  Age: 31 Year
  Sex: Female

DRUGS (5)
  1. CELLCEPT [Suspect]
     Indication: AUTOIMMUNE HEPATITIS
     Route: 048
     Dates: start: 201305
  2. CELLCEPT [Suspect]
     Indication: SYSTEMIC LUPUS ERYTHEMATOSUS
     Route: 065
  3. CELLCEPT [Suspect]
     Route: 065
  4. SOLU-MEDROL [Suspect]
     Indication: AUTOIMMUNE HEPATITIS
     Route: 065
  5. METYPRED [Suspect]
     Indication: SYSTEMIC LUPUS ERYTHEMATOSUS
     Route: 048
     Dates: start: 20130630, end: 201310

REACTIONS (2)
  - Osteonecrosis [Unknown]
  - Arthritis [Unknown]
